FAERS Safety Report 9157469 (Version 1)
Quarter: 2013Q1

REPORT INFORMATION
  Report Type: Spontaneous
  Country: US (occurrence: None)
  Receive Date: 20130213
  Receipt Date: 20130213
  Transmission Date: 20140127
  Serious: Yes (Life-Threatening, Hospitalization, Disabling, Other)
  Sender: FDA-Public Use
  Company Number: 2013P1001831

PATIENT
  Age: 36 Year
  Sex: Male

DRUGS (9)
  1. METOPROLOL [Suspect]
     Route: 048
  2. METOPROLOL [Suspect]
     Route: 048
  3. METOPROLOL [Suspect]
     Route: 048
  4. METOPROLOL [Suspect]
     Route: 048
  5. PROMETHAZINE [Suspect]
     Route: 048
  6. PREGABALIN [Suspect]
     Route: 048
  7. MECLIZINE [Suspect]
     Route: 048
  8. METHAMPHETAMINE [Concomitant]
  9. ^MOONSHINE (A LOCAL ALCOHOLIC BEVERAGE) [Concomitant]

REACTIONS (19)
  - Lethargy [None]
  - Dysarthria [None]
  - Mental status changes [None]
  - Hypotension [None]
  - Bradycardia [None]
  - Unresponsive to stimuli [None]
  - Mydriasis [None]
  - Pulse absent [None]
  - Overdose [None]
  - Toxicity to various agents [None]
  - Hypoxia [None]
  - Metabolic disorder [None]
  - Respiratory failure [None]
  - Renal failure [None]
  - Hepatic ischaemia [None]
  - Adrenal insufficiency [None]
  - Sepsis [None]
  - Blindness [None]
  - Brain injury [None]
